FAERS Safety Report 7864506-5 (Version None)
Quarter: 2011Q4

REPORT INFORMATION
  Report Type: 
  Country: None (occurrence: None)
  Receive Date: 20111028
  Receipt Date: 20111024
  Transmission Date: 20120403
  Serious: No
  Sender: FDA-Public Use
  Company Number: US-PFIZER INC-2011259058

PATIENT
  Sex: Female

DRUGS (1)
  1. SUTENT [Suspect]
     Indication: PANCREATIC CARCINOMA
     Dosage: 37.5 MG, UNK
     Dates: start: 20111012

REACTIONS (4)
  - NAUSEA [None]
  - VOMITING [None]
  - DECREASED APPETITE [None]
  - CONSTIPATION [None]
